FAERS Safety Report 5019999-8 (Version None)
Quarter: 2006Q2

REPORT INFORMATION
  Report Type: 
  Country: None (occurrence: None)
  Receive Date: 20060602
  Receipt Date: 20060524
  Transmission Date: 20061013
  Serious: Yes (Life-Threatening, Hospitalization)
  Sender: FDA-Public Use
  Company Number: 200610476BFR

PATIENT
  Age: 82 Year
  Sex: Male

DRUGS (17)
  1. SORAFENIB [Suspect]
     Indication: METASTATIC RENAL CELL CARCINOMA
     Dosage: SEE IMAGE
     Route: 048
     Dates: start: 20060114, end: 20060312
  2. SORAFENIB [Suspect]
     Indication: METASTATIC RENAL CELL CARCINOMA
     Dosage: SEE IMAGE
     Route: 048
     Dates: start: 20060113
  3. SORAFENIB [Suspect]
     Indication: METASTATIC RENAL CELL CARCINOMA
     Dosage: SEE IMAGE
     Route: 048
     Dates: start: 20060313
  4. SORAFENIB [Suspect]
     Dosage: SEE IMAGE
     Route: 048
     Dates: start: 20060314, end: 20060508
  5. SORAFENIB [Suspect]
     Dosage: SEE IMAGE
     Route: 048
     Dates: start: 20060313
  6. SORAFENIB [Suspect]
     Dosage: SEE IMAGE
     Route: 048
     Dates: start: 20060509
  7. SORAFENIB [Suspect]
     Dosage: SEE IMAGE
     Route: 048
     Dates: start: 20060510, end: 20060520
  8. SORAFENIB [Suspect]
     Dosage: SEE IMAGE
     Route: 048
     Dates: start: 20060509
  9. SORAFENIB [Suspect]
     Dosage: SEE IMAGE
     Route: 048
     Dates: start: 20060521
  10. XATRAL - SLOW RELEASE [Concomitant]
  11. EXACYL [Concomitant]
  12. DICYNONE [Concomitant]
  13. TARKA - SLOW RELEASE [Concomitant]
  14. ULTRA-LEVURE [Concomitant]
  15. SMECTA [Concomitant]
  16. DOLIPRANE [Concomitant]
  17. DI-ANTALVIC [Concomitant]

REACTIONS (2)
  - C-REACTIVE PROTEIN INCREASED [None]
  - PULMONARY EMBOLISM [None]
